FAERS Safety Report 22196633 (Version 1)
Quarter: 2023Q2

REPORT INFORMATION
  Report Type: Report from Study
  Country: IT (occurrence: IT)
  Receive Date: 20230411
  Receipt Date: 20230411
  Transmission Date: 20230722
  Serious: Yes (Other)
  Sender: FDA-Public Use
  Company Number: IT-Accord-307538

PATIENT

DRUGS (1)
  1. METHOTREXATE [Suspect]
     Active Substance: METHOTREXATE
     Indication: Retroperitoneal fibrosis

REACTIONS (3)
  - Sepsis [Unknown]
  - Hepatotoxicity [Unknown]
  - Off label use [Unknown]
